FAERS Safety Report 8168298-4 (Version None)
Quarter: 2012Q1

REPORT INFORMATION
  Report Type: 
  Country: None (occurrence: None)
  Receive Date: 20120227
  Receipt Date: 20120221
  Transmission Date: 20120608
  Serious: Yes (Other)
  Sender: FDA-Public Use
  Company Number: US-MERCK-1202USA02995

PATIENT
  Sex: Male

DRUGS (2)
  1. ZOCOR [Suspect]
     Route: 048
  2. LIPITOR [Suspect]
     Route: 065

REACTIONS (1)
  - CEREBROVASCULAR ACCIDENT [None]
